FAERS Safety Report 19199310 (Version 4)
Quarter: 2022Q2

REPORT INFORMATION
  Report Type: Spontaneous
  Country: US (occurrence: US)
  Receive Date: 20210430
  Receipt Date: 20220513
  Transmission Date: 20220721
  Serious: No
  Sender: FDA-Public Use
  Company Number: US-SANOFI-00566792

PATIENT
  Age: 52 Year
  Sex: Female

DRUGS (1)
  1. LANTUS [Suspect]
     Active Substance: INSULIN GLARGINE
     Indication: Type 2 diabetes mellitus
     Dosage: 21 IU, QD
     Route: 065
     Dates: start: 202012

REACTIONS (5)
  - Malaise [Unknown]
  - Nasopharyngitis [Unknown]
  - Blood glucose abnormal [Unknown]
  - Device issue [Unknown]
  - Drug ineffective [Unknown]
